FAERS Safety Report 10214171 (Version 1)
Quarter: 2014Q2

REPORT INFORMATION
  Report Type: Spontaneous
  Country: US (occurrence: US)
  Receive Date: 20140603
  Receipt Date: 20140603
  Transmission Date: 20141212
  Serious: No
  Sender: FDA-Public Use
  Company Number: US-PFIZER INC-2014147996

PATIENT
  Age: 76 Year
  Sex: Female
  Weight: 57 kg

DRUGS (4)
  1. COLESTID [Suspect]
     Indication: BLOOD CHOLESTEROL INCREASED
     Dosage: 5 MG, DAILY
  2. NORVASC [Concomitant]
     Indication: HYPERTENSION
     Dosage: 2.5 MG, DAILY
  3. BYSTOLIC [Concomitant]
     Indication: HYPERTENSION
     Dosage: 20 MG, DAILY
  4. VITAMIN D3 [Concomitant]
     Indication: OSTEOPENIA
     Dosage: UNK

REACTIONS (1)
  - Drug ineffective [Unknown]
